APPROVED DRUG PRODUCT: ZOMIG
Active Ingredient: ZOLMITRIPTAN
Strength: 5MG **Federal Register determination that product was not discontinued or withdrawn for safety or effectiveness reasons**
Dosage Form/Route: TABLET;ORAL
Application: N020768 | Product #002
Applicant: IPR PHARMACEUTICALS INC
Approved: Nov 25, 1997 | RLD: Yes | RS: No | Type: DISCN